FAERS Safety Report 19191391 (Version 3)
Quarter: 2021Q2

REPORT INFORMATION
  Report Type: Report from Study
  Country: US (occurrence: US)
  Receive Date: 20210428
  Receipt Date: 20210519
  Transmission Date: 20210717
  Serious: Yes (Hospitalization)
  Sender: FDA-Public Use
  Company Number: US-JNJFOC-20210441941

PATIENT
  Age: 72 Year
  Sex: Female
  Weight: 53 kg

DRUGS (7)
  1. JNJ?64007957 [Suspect]
     Active Substance: TECLISTAMAB
     Indication: PLASMA CELL MYELOMA
     Route: 058
     Dates: start: 20210409, end: 20210409
  2. ALLOPURINOL. [Concomitant]
     Active Substance: ALLOPURINOL
     Indication: PRODUCT USED FOR UNKNOWN INDICATION
     Route: 048
     Dates: start: 20210324, end: 20210423
  3. PEPCID [Concomitant]
     Active Substance: FAMOTIDINE
     Indication: PRODUCT USED FOR UNKNOWN INDICATION
     Route: 048
     Dates: start: 20210206
  4. JNJ?64007957 [Suspect]
     Active Substance: TECLISTAMAB
     Dosage: C2D8
     Route: 058
     Dates: start: 20210506, end: 20210506
  5. LEVOTHYROXINE. [Concomitant]
     Active Substance: LEVOTHYROXINE
     Indication: HYPOTHYROIDISM
     Route: 048
  6. OXYCODONE [Concomitant]
     Active Substance: OXYCODONE
     Indication: PAIN
     Dosage: EVERY 4 HOURS, AS NEEDED
     Route: 048
     Dates: start: 20210404, end: 20210409
  7. DARATUMUMAB [Suspect]
     Active Substance: DARATUMUMAB
     Indication: PLASMA CELL MYELOMA
     Route: 058
     Dates: start: 20210408, end: 20210408

REACTIONS (2)
  - Tumour flare [Recovered/Resolved with Sequelae]
  - Stomatitis [Not Recovered/Not Resolved]

NARRATIVE: CASE EVENT DATE: 20210409
